FAERS Safety Report 8291172-X (Version None)
Quarter: 2012Q2

REPORT INFORMATION
  Report Type: 
  Country: None (occurrence: None)
  Receive Date: 20120417
  Receipt Date: 20120409
  Transmission Date: 20120825
  Serious: Yes (Hospitalization, Other)
  Sender: FDA-Public Use
  Company Number: US-MERCK-1202USA01715

PATIENT
  Age: 53 Year
  Sex: Male
  Weight: 109 kg

DRUGS (4)
  1. JANUMET [Suspect]
     Indication: TYPE 2 DIABETES MELLITUS
     Route: 048
     Dates: start: 20110624
  2. CRESTOR [Concomitant]
     Route: 065
  3. SERTRALINE HYDROCHLORIDE [Concomitant]
     Route: 065
  4. BUPROPION HYDROCHLORIDE [Concomitant]
     Route: 065

REACTIONS (8)
  - CONVULSION [None]
  - THROMBOSIS [None]
  - ISCHAEMIC STROKE [None]
  - FEELING ABNORMAL [None]
  - WEIGHT DECREASED [None]
  - PRURITUS [None]
  - BLOOD GLUCOSE INCREASED [None]
  - ATRIAL SEPTAL DEFECT [None]
